FAERS Safety Report 9918740 (Version 3)
Quarter: 2014Q2

REPORT INFORMATION
  Report Type: Spontaneous
  Country: US (occurrence: US)
  Receive Date: 20140224
  Receipt Date: 20140416
  Transmission Date: 20141212
  Serious: Yes (Life-Threatening, Hospitalization)
  Sender: FDA-Public Use
  Company Number: US-SUN PHARMACEUTICAL INDUSTRIES LTD-2014SUN00368

PATIENT
  Sex: 0

DRUGS (17)
  1. BACTRIM TABLETS, USP 400 MG/ 80 MG [Suspect]
     Indication: STAPHYLOCOCCAL INFECTION
     Dosage: 1 DF, BID
     Route: 048
     Dates: start: 20140102
  2. BACTRIM TABLETS, USP 400 MG/ 80 MG [Suspect]
     Indication: SKIN LESION
  3. INVOKANA [Suspect]
     Indication: TYPE 2 DIABETES MELLITUS
     Dosage: 100 MG, QD
     Route: 048
     Dates: start: 201312, end: 20140105
  4. INVOKANA [Suspect]
     Dosage: 300 MG, QD
     Route: 048
  5. TAMIFLU [Suspect]
     Indication: INFLUENZA
     Dosage: 75 MG, BID
     Route: 048
     Dates: start: 20140106, end: 20140108
  6. TAMIFLU [Suspect]
     Indication: PYREXIA
  7. PHENERGAN SUPPOSITORY [Suspect]
     Indication: NAUSEA
     Dosage: 25 MG, UNK
     Route: 054
     Dates: start: 20140107, end: 20140108
  8. PHENERGAN SUPPOSITORY [Suspect]
     Indication: VOMITING
  9. METFORMIN [Concomitant]
     Indication: DIABETES MELLITUS
  10. INSULIN [Concomitant]
  11. JANUMET [Concomitant]
  12. TRIMETHOPRIM [Concomitant]
  13. SULFAMETHOXAZOLE [Concomitant]
  14. CRESTOR [Concomitant]
     Dosage: 10 MG, OD
  15. LISINOPRIL [Concomitant]
     Indication: HYPERTENSION
     Dosage: 20 MG, QD
     Route: 048
  16. SITAGLIPTIN [Concomitant]
     Indication: DIABETES MELLITUS
  17. ROSUVASTATIN CALCIUM [Concomitant]
     Indication: BLOOD CHOLESTEROL INCREASED

REACTIONS (12)
  - Septic shock [Recovered/Resolved]
  - Vulvovaginal mycotic infection [Recovering/Resolving]
  - Fungal infection [Recovering/Resolving]
  - Fungal skin infection [Recovering/Resolving]
  - Rash generalised [Recovering/Resolving]
  - Oral fungal infection [Recovering/Resolving]
  - Influenza like illness [Recovering/Resolving]
  - Pyrexia [Recovering/Resolving]
  - Body tinea [Recovering/Resolving]
  - Weight decreased [Unknown]
  - Renal failure acute [Recovered/Resolved]
  - Hypersensitivity [Recovered/Resolved]
